FAERS Safety Report 21600162 (Version 1)
Quarter: 2022Q4

REPORT INFORMATION
  Report Type: Report from Study
  Country: CO (occurrence: CO)
  Receive Date: 20221116
  Receipt Date: 20221116
  Transmission Date: 20230113
  Serious: Yes (Hospitalization, Other)
  Sender: FDA-Public Use
  Company Number: CO-JNJFOC-20221109257

PATIENT
  Sex: Female
  Weight: 65 kg

DRUGS (1)
  1. IMBRUVICA [Suspect]
     Active Substance: IBRUTINIB
     Indication: Chronic lymphocytic leukaemia
     Route: 048
     Dates: start: 20170301

REACTIONS (6)
  - Abdominal pain upper [Unknown]
  - Lymphadenopathy [Unknown]
  - Oral mucosal blistering [Unknown]
  - Immunodeficiency [Unknown]
  - Headache [Unknown]
  - Hypoaesthesia oral [Unknown]
